FAERS Safety Report 25527062 (Version 1)
Quarter: 2025Q3

REPORT INFORMATION
  Report Type: Spontaneous
  Country: US (occurrence: US)
  Receive Date: 20250708
  Receipt Date: 20250708
  Transmission Date: 20251020
  Serious: No
  Sender: ACCORD
  Company Number: US-Accord-429961

PATIENT
  Age: 78 Year
  Sex: Male

DRUGS (2)
  1. LEUPROLIDE [Suspect]
     Active Substance: LEUPROLIDE
     Indication: Prostate cancer
     Dates: start: 20230330
  2. LEUPROLIDE [Suspect]
     Active Substance: LEUPROLIDE
     Indication: Prostate cancer
     Dates: start: 20230330

REACTIONS (5)
  - Fatigue [Unknown]
  - Hot flush [Unknown]
  - Weight increased [Unknown]
  - Blood testosterone decreased [Unknown]
  - Blood luteinising hormone decreased [Unknown]

NARRATIVE: CASE EVENT DATE: 20240510
